FAERS Safety Report 5387615-1 (Version None)
Quarter: 2007Q3

REPORT INFORMATION
  Report Type: 
  Country: None (occurrence: None)
  Receive Date: 20070712
  Receipt Date: 20070702
  Transmission Date: 20080115
  Serious: Yes (Death)
  Sender: FDA-Public Use
  Company Number: FABR-12039

PATIENT
  Age: 55 Year
  Sex: Male
  Weight: 68 kg

DRUGS (10)
  1. FABRAZYME [Suspect]
     Indication: FABRY'S DISEASE
     Dosage: 1 MG/KG Q2WS IV
     Route: 042
     Dates: start: 20021122, end: 20070222
  2. OMIX [Concomitant]
  3. CELLCEPT [Concomitant]
  4. NEORAL [Concomitant]
  5. UNALFA [Concomitant]
  6. VASTIN [Concomitant]
  7. ALLOPURINOL [Concomitant]
  8. FONZYLANE [Concomitant]
  9. ALDACTONE [Concomitant]
  10. KARDEGIC [Concomitant]

REACTIONS (5)
  - ARTERITIS [None]
  - BRAIN STEM ISCHAEMIA [None]
  - CARDIAC FAILURE [None]
  - EXTRAVASATION [None]
  - POOR VENOUS ACCESS [None]
